FAERS Safety Report 21691962 (Version 1)
Quarter: 2022Q4

REPORT INFORMATION
  Report Type: Spontaneous
  Country: US (occurrence: US)
  Receive Date: 20221207
  Receipt Date: 20221207
  Transmission Date: 20230112
  Serious: No
  Sender: FDA-Public Use
  Company Number: US-AUROBINDO-AUR-APL-2022-034923

PATIENT
  Age: 72 Year
  Sex: Male
  Weight: 57 kg

DRUGS (1)
  1. MIRTAZAPINE [Suspect]
     Active Substance: MIRTAZAPINE
     Indication: Somnolence
     Dosage: 15 MILLIGRAM, ONCE A DAY (ONCE A NIGHT)
     Route: 048
     Dates: start: 20220716

REACTIONS (3)
  - Hyperhidrosis [Not Recovered/Not Resolved]
  - Feeling hot [Not Recovered/Not Resolved]
  - Visual impairment [Not Recovered/Not Resolved]
